FAERS Safety Report 14142297 (Version 1)
Quarter: 2017Q4

REPORT INFORMATION
  Report Type: Spontaneous
  Country: US (occurrence: US)
  Receive Date: 20171030
  Receipt Date: 20171030
  Transmission Date: 20180321
  Serious: No
  Sender: FDA-Public Use
  Company Number: US-IPSEN BIOPHARMACEUTICALS, INC.-2017-10423

PATIENT

DRUGS (2)
  1. INCRELEX [Suspect]
     Active Substance: MECASERMIN
     Indication: GENE MUTATION
     Dosage: NOT REPORTED
     Route: 065
  2. INCRELEX [Suspect]
     Active Substance: MECASERMIN
     Indication: OFF LABEL USE

REACTIONS (2)
  - Drug ineffective for unapproved indication [Unknown]
  - Off label use [Unknown]
